FAERS Safety Report 8739419 (Version 2)
Quarter: 2012Q4

REPORT INFORMATION
  Report Type: Spontaneous
  Country: US (occurrence: None)
  Receive Date: 20120807
  Receipt Date: 20120829
  Transmission Date: 20130627
  Serious: Yes (Other)
  Sender: FDA-Public Use
  Company Number: AUR-APL-2012-03278

PATIENT
  Age: 47 Year
  Sex: Female
  Weight: 90.25 kg

DRUGS (5)
  1. LAMOTRIGINE [Suspect]
     Indication: DRUG USE FOR UNKNOWN INDICATION
  2. PRISTIQ EXTENDED RELEASE [Suspect]
     Indication: BIPOLAR DISORDER
     Dosage: DAILY, ORAL
     Route: 048
     Dates: start: 20120413, end: 20120613
  3. XANAX [Suspect]
     Indication: ANXIETY
     Dosage: HALF TABLET OF UNKNOWN DOSE
     Route: 048
     Dates: start: 201108
  4. ABILIFY [Suspect]
     Indication: DRUG USE FOR UNKNOWN INDICATION
  5. HYDROCODONE (HYDROCODONE) [Concomitant]

REACTIONS (7)
  - Haemorrhoidal haemorrhage [None]
  - Medication residue [None]
  - Panic attack [None]
  - Weight decreased [None]
  - Drug effect decreased [None]
  - Depressed mood [None]
  - Irritability [None]
